FAERS Safety Report 20091631 (Version 1)
Quarter: 2021Q4

REPORT INFORMATION
  Report Type: Spontaneous
  Country: US (occurrence: None)
  Receive Date: 20211119
  Receipt Date: 20211119
  Transmission Date: 20220303
  Serious: Yes (Life-Threatening, Hospitalization, Other)
  Sender: FDA-Public Use
  Company Number: None

PATIENT
  Age: 30 Year
  Sex: Female
  Weight: 75.6 kg

DRUGS (1)
  1. LUMASON [Suspect]
     Active Substance: SULFUR HEXAFLUORIDE
     Indication: Cardiac imaging procedure
     Dosage: FREQUENCY : ONCE;?
     Route: 042
     Dates: start: 20211110, end: 20211110

REACTIONS (5)
  - Angioedema [None]
  - Erythema [None]
  - Urticaria [None]
  - Hyperhidrosis [None]
  - Speech disorder [None]

NARRATIVE: CASE EVENT DATE: 20211110
